FAERS Safety Report 12960692 (Version 1)
Quarter: 2016Q4

REPORT INFORMATION
  Report Type: Spontaneous
  Country: US (occurrence: US)
  Receive Date: 20161121
  Receipt Date: 20161121
  Transmission Date: 20170207
  Serious: No
  Sender: FDA-Public Use
  Company Number: US-OTSUKA-2016_011366

PATIENT
  Age: 52 Year
  Sex: Female

DRUGS (3)
  1. NUEDEXTA [Suspect]
     Active Substance: DEXTROMETHORPHAN HYDROBROMIDE\QUINIDINE SULFATE
     Indication: BIPOLAR DISORDER
     Dosage: 1 DF, QD (ONE CAPSULE AT NIGHT)
     Route: 048
     Dates: start: 20160517, end: 20160517
  2. NUEDEXTA [Suspect]
     Active Substance: DEXTROMETHORPHAN HYDROBROMIDE\QUINIDINE SULFATE
     Indication: MAJOR DEPRESSION
     Dosage: 1 DF, BID
     Route: 048
     Dates: start: 20160518
  3. ESTRADIOL. [Concomitant]
     Active Substance: ESTRADIOL
     Indication: MENOPAUSE
     Dosage: UNK
     Route: 065

REACTIONS (6)
  - Decreased activity [Unknown]
  - Asthenia [Unknown]
  - Product use issue [Unknown]
  - Dizziness [Unknown]
  - Off label use [Unknown]
  - Fatigue [Not Recovered/Not Resolved]

NARRATIVE: CASE EVENT DATE: 20160517
